FAERS Safety Report 12384846 (Version 2)
Quarter: 2016Q3

REPORT INFORMATION
  Report Type: Spontaneous
  Country: US (occurrence: US)
  Receive Date: 20160519
  Receipt Date: 20160719
  Transmission Date: 20161109
  Serious: Yes (Other)
  Sender: FDA-Public Use
  Company Number: PHEH2016US012332

PATIENT
  Sex: Female

DRUGS (2)
  1. EXEMESTANE. [Concomitant]
     Active Substance: EXEMESTANE
     Indication: BREAST CANCER
     Route: 065
  2. AFINITOR [Suspect]
     Active Substance: EVEROLIMUS
     Indication: BREAST CANCER
     Dosage: UNK UNK, QD
     Route: 048
     Dates: start: 20140901, end: 20160701

REACTIONS (11)
  - Metastases to liver [Not Recovered/Not Resolved]
  - Fatigue [Unknown]
  - Central nervous system lesion [Recovered/Resolved]
  - Headache [Unknown]
  - Central nervous system lesion [Recovered/Resolved]
  - Urticaria [Recovered/Resolved]
  - Metastases to lung [Not Recovered/Not Resolved]
  - Rash [Recovered/Resolved]
  - Malignant neoplasm progression [Not Recovered/Not Resolved]
  - Arthropathy [Unknown]
  - Metastases to central nervous system [Recovered/Resolved]

NARRATIVE: CASE EVENT DATE: 20151001
